FAERS Safety Report 12350939 (Version 1)
Quarter: 2016Q2

REPORT INFORMATION
  Report Type: Spontaneous
  Country: KR (occurrence: KR)
  Receive Date: 20160420
  Receipt Date: 20160420
  Transmission Date: 20160815
  Serious: Yes (Death, Other)
  Sender: FDA-Public Use
  Company Number: KR-MALLINCKRODT-T201601284

PATIENT
  Age: 3 Day
  Sex: Male
  Weight: 3 kg

DRUGS (18)
  1. AMPICILLIN [Concomitant]
     Active Substance: AMPICILLIN
     Dosage: 310 MG, PER DAY
     Route: 042
     Dates: start: 20160402, end: 20160405
  2. GENTAMICIN. [Concomitant]
     Active Substance: GENTAMICIN
     Dosage: 13 MG, PER DAY
     Route: 042
     Dates: start: 20160402, end: 20160405
  3. DOBUTAMINE [Concomitant]
     Active Substance: DOBUTAMINE\DOBUTAMINE HYDROCHLORIDE
     Dosage: 45 MG, ONE DAY
     Route: 042
     Dates: start: 20160402, end: 20160402
  4. VIAGRA [Concomitant]
     Active Substance: SILDENAFIL CITRATE
     Dosage: 6.2 MG, PER DAY
     Route: 048
     Dates: start: 20160402, end: 20160405
  5. INOMAX [Suspect]
     Active Substance: NITRIC OXIDE
     Indication: NEONATAL RESPIRATORY DISTRESS SYNDROME
     Dosage: 20 PPM
     Dates: start: 20160402, end: 20160402
  6. CORTISOLU [Concomitant]
     Active Substance: HYDROCORTISONE SODIUM SUCCINATE
     Dosage: 9 MG, PER DAY
     Route: 042
     Dates: start: 20160402, end: 20160404
  7. FENTANYL. [Concomitant]
     Active Substance: FENTANYL
     Dosage: 300 MCG, PER DAY
     Route: 042
     Dates: start: 20160402, end: 20160405
  8. DOPASIN [Concomitant]
     Dosage: 45 MG, ONE DAY
     Route: 042
     Dates: start: 20160402, end: 20160402
  9. DOBUTAMINE [Concomitant]
     Active Substance: DOBUTAMINE\DOBUTAMINE HYDROCHLORIDE
     Dosage: 45 MG, PER DAY
     Route: 042
     Dates: start: 20160405, end: 20160406
  10. CEREBYX [Concomitant]
     Active Substance: FOSPHENYTOIN SODIUM
     Dosage: 16 MG, PER DAY
     Route: 042
     Dates: start: 20160402, end: 20160405
  11. INOMAX [Suspect]
     Active Substance: NITRIC OXIDE
     Indication: PERSISTENT FOETAL CIRCULATION
     Dosage: 30 PPM
     Dates: start: 20160402, end: 20160405
  12. INOMAX [Suspect]
     Active Substance: NITRIC OXIDE
     Dosage: 40PPM
     Dates: start: 20160405, end: 20160406
  13. EPINEPHRINE. [Concomitant]
     Active Substance: EPINEPHRINE
     Dosage: 1.4 MG, PER DAY
     Route: 042
     Dates: start: 20160405, end: 20160406
  14. DOPASIN [Concomitant]
     Dosage: 45 MG, PER DAY
     Route: 042
     Dates: start: 20160405, end: 20160406
  15. MIDAZOLAM [Concomitant]
     Active Substance: MIDAZOLAM\MIDAZOLAM HYDROCHLORIDE
     Dosage: 8.7 MG, PER DAY
     Route: 042
     Dates: start: 20160403, end: 20160405
  16. EPINEPHRINE. [Concomitant]
     Active Substance: EPINEPHRINE
     Dosage: 1.4 MG, ONE DAY
     Route: 042
     Dates: start: 20160402, end: 20160402
  17. PHENOBARBITAL. [Concomitant]
     Active Substance: PHENOBARBITAL
     Dosage: 16 MG, PER DAY
     Route: 042
     Dates: start: 20160402, end: 20160405
  18. PRIMACOR [Concomitant]
     Active Substance: MILRINONE LACTATE
     Dosage: 2.3 MG, PER DAY
     Route: 042
     Dates: start: 20160402, end: 20160404

REACTIONS (3)
  - Condition aggravated [Not Recovered/Not Resolved]
  - Off label use [Unknown]
  - Neonatal asphyxia [Fatal]

NARRATIVE: CASE EVENT DATE: 20160403
